FAERS Safety Report 6643026-X (Version None)
Quarter: 2010Q1

REPORT INFORMATION
  Report Type: 
  Country: None (occurrence: None)
  Receive Date: 20100319
  Receipt Date: 20100315
  Transmission Date: 20100710
  Serious: Yes (Hospitalization)
  Sender: FDA-Public Use
  Company Number: B0639885A

PATIENT
  Age: 46 Year
  Sex: Male

DRUGS (2)
  1. AUGMENTIN '125' [Suspect]
     Indication: APPENDICITIS
     Dosage: 1G SINGLE DOSE
     Route: 042
     Dates: start: 20090403, end: 20090403
  2. PERFALGAN [Suspect]
     Indication: ABDOMINAL PAIN
     Dosage: 1G SINGLE DOSE
     Route: 042
     Dates: start: 20090403, end: 20090403

REACTIONS (2)
  - PRURITUS [None]
  - TOXIC SKIN ERUPTION [None]
